FAERS Safety Report 7852568-0 (Version None)
Quarter: 2011Q4

REPORT INFORMATION
  Report Type: 
  Country: None (occurrence: None)
  Receive Date: 20111026
  Receipt Date: 20111024
  Transmission Date: 20120403
  Serious: Yes (Death, Hospitalization)
  Sender: FDA-Public Use
  Company Number: US-GLAXOSMITHKLINE-A0653041A

PATIENT
  Age: 82 Year
  Sex: Male

DRUGS (8)
  1. AVANDIA [Suspect]
     Indication: TYPE 2 DIABETES MELLITUS
     Route: 048
     Dates: start: 19991101, end: 20090807
  2. PRANDIN [Concomitant]
  3. EXCEDRIN (MIGRAINE) [Concomitant]
  4. HYDRALAZINE HCL [Concomitant]
  5. NORVASC [Concomitant]
  6. CRESTOR [Concomitant]
  7. ZETIA [Concomitant]
  8. PLAVIX [Concomitant]

REACTIONS (4)
  - CARDIAC DEATH [None]
  - CORONARY ARTERY DISEASE [None]
  - MYOCARDIAL INFARCTION [None]
  - CEREBROVASCULAR ACCIDENT [None]
